FAERS Safety Report 7914560 (Version 2)
Quarter: 2012Q4

REPORT INFORMATION
  Report Type: Spontaneous
  Country: US (occurrence: None)
  Receive Date: 20110405
  Receipt Date: 20121009
  Transmission Date: 20130627
  Serious: Yes (Other)
  Sender: FDA-Public Use
  Company Number: 2011MA002701

PATIENT
  Sex: Male

DRUGS (37)
  1. METOCLOPRAMIDE [Suspect]
     Dosage: 10 MG;TID AC PRN; PO
     Dates: start: 20050217, end: 20090512
  2. FAMOTIDINE [Concomitant]
  3. ERYTHROMYCIN [Concomitant]
  4. DOXYCYCLINE [Concomitant]
  5. NASONEX [Concomitant]
  6. CRESTOR [Concomitant]
  7. NIASPAN [Concomitant]
  8. PROPOXYPHENE [Concomitant]
  9. METOPROLOL [Concomitant]
  10. FLOMAX [Concomitant]
  11. DIOVAN [Concomitant]
  12. LOVASTATIN [Concomitant]
  13. LYRICA [Concomitant]
  14. CARVEDILOL [Concomitant]
  15. PROMETHAZINE [Concomitant]
  16. LANTUS [Concomitant]
  17. FINASTERIDE [Concomitant]
  18. NEXIUM [Concomitant]
  19. GABAPENTIN [Concomitant]
  20. OXYCODONE/APAP [Concomitant]
  21. ASPIRINE [Concomitant]
  22. ENALAPRIL [Concomitant]
  23. CARBIDOPA/LEVODOPA [Concomitant]
  24. ACETAMINOPHEN/CODEINE [Concomitant]
  25. ZOLPIDEM [Concomitant]
  26. JANUVIA [Concomitant]
  27. GLYBURIDE/METFORMIN [Concomitant]
  28. PLAVIX [Concomitant]
  29. DETROL [Concomitant]
  30. OMEPRAZOLE [Concomitant]
  31. FERROUS SULFATE [Concomitant]
  32. CILOSTAZOL [Concomitant]
  33. HCTZ [Concomitant]
  34. COZAAR [Concomitant]
  35. AVANDIA [Concomitant]
  36. ADVICOR [Concomitant]
  37. NOVOLOG [Concomitant]

REACTIONS (10)
  - Tardive dyskinesia [None]
  - Dystonia [None]
  - Akathisia [None]
  - Restless legs syndrome [None]
  - Extrapyramidal disorder [None]
  - Tremor [None]
  - Economic problem [None]
  - Family stress [None]
  - Emotional disorder [None]
  - Injury [None]
